FAERS Safety Report 8378063-0 (Version None)
Quarter: 2012Q2

REPORT INFORMATION
  Report Type: 
  Country: None (occurrence: None)
  Receive Date: 20120522
  Receipt Date: 20120510
  Transmission Date: 20120825
  Serious: Yes (Death, Hospitalization)
  Sender: FDA-Public Use
  Company Number: US-ACTELION-A-NJ2011-58733

PATIENT

DRUGS (7)
  1. OXYGEN [Concomitant]
  2. CALCIUM CHANNEL BLOCKERS [Concomitant]
  3. DIGOXIN [Concomitant]
  4. SILDENAFIL [Concomitant]
  5. EPOPROSTENOL SODIUM [Suspect]
     Indication: PULMONARY ARTERIAL HYPERTENSION
     Dosage: 8 NG/KG, PER MIN
     Route: 041
     Dates: start: 20111202
  6. TRACLEER [Suspect]
     Indication: PULMONARY ARTERIAL HYPERTENSION
     Dosage: UNK
     Route: 048
     Dates: start: 20040406
  7. COUMADIN [Concomitant]

REACTIONS (8)
  - FLUSHING [None]
  - HYPOXIA [None]
  - DEATH [None]
  - DIZZINESS EXERTIONAL [None]
  - HYPOTENSION [None]
  - HEADACHE [None]
  - DYSPNOEA [None]
  - PAIN IN JAW [None]
